FAERS Safety Report 19144566 (Version 1)
Quarter: 2021Q2

REPORT INFORMATION
  Report Type: Spontaneous
  Country: US (occurrence: US)
  Receive Date: 20210415
  Receipt Date: 20210415
  Transmission Date: 20210717
  Serious: Yes (Hospitalization)
  Sender: FDA-Public Use
  Company Number: None

PATIENT
  Age: 69 Year
  Sex: Female

DRUGS (16)
  1. AZITHROMYCIN ANHYDROUS. [Concomitant]
     Active Substance: AZITHROMYCIN ANHYDROUS
  2. FLUTICASONE SPR [Concomitant]
  3. AMLODIPINE [Concomitant]
     Active Substance: AMLODIPINE BESYLATE
  4. FLUCONAZOLE. [Concomitant]
     Active Substance: FLUCONAZOLE
  5. ZOLPIDEM [Concomitant]
     Active Substance: ZOLPIDEM TARTRATE
  6. ACTEMRA [Suspect]
     Active Substance: TOCILIZUMAB
     Indication: POLYMYALGIA RHEUMATICA
     Route: 058
     Dates: start: 20180804
  7. LOSARTAN POT [Concomitant]
     Active Substance: LOSARTAN POTASSIUM
  8. TOPIRAMATE. [Concomitant]
     Active Substance: TOPIRAMATE
  9. HYDROXYZ PAM [Concomitant]
     Active Substance: HYDROXYZINE PAMOATE
  10. ONDANSETRON [Concomitant]
     Active Substance: ONDANSETRON
  11. PROBIOTIC [Concomitant]
     Active Substance: PROBIOTICS NOS
  12. ALPRAZOLAM. [Concomitant]
     Active Substance: ALPRAZOLAM
  13. NABUMETONE. [Concomitant]
     Active Substance: NABUMETONE
  14. IPRATROPIUM SPR [Concomitant]
  15. HYDROCHLOROT [Concomitant]
     Active Substance: HYDROCHLOROTHIAZIDE
  16. PREDNISONE. [Concomitant]
     Active Substance: PREDNISONE

REACTIONS (2)
  - Therapy interrupted [None]
  - Urinary tract infection [None]

NARRATIVE: CASE EVENT DATE: 20210414
